FAERS Safety Report 24304685 (Version 3)
Quarter: 2025Q1

REPORT INFORMATION
  Report Type: Spontaneous
  Country: CA (occurrence: CA)
  Receive Date: 20240910
  Receipt Date: 20250131
  Transmission Date: 20250409
  Serious: Yes (Death, Life-Threatening, Hospitalization, Other)
  Sender: SANDOZ
  Company Number: CA-MLMSERVICE-20171026-0938301-1

PATIENT
  Age: 60 Year
  Sex: Male

DRUGS (26)
  1. BORTEZOMIB [Suspect]
     Active Substance: BORTEZOMIB
     Indication: Prophylaxis against graft versus host disease
     Dosage: 1.3 MG/M2, BIW, 2 EVERY 1 WEEKS
     Route: 065
  2. PREDNISONE [Suspect]
     Active Substance: PREDNISONE
     Indication: Graft versus host disease
     Dosage: 15 MG, QD
     Route: 048
  3. PREDNISONE [Suspect]
     Active Substance: PREDNISONE
     Indication: Prophylaxis against graft versus host disease
     Dosage: 15 MG, TID,
     Route: 048
  4. PREDNISONE [Suspect]
     Active Substance: PREDNISONE
     Route: 048
  5. PREDNISONE [Suspect]
     Active Substance: PREDNISONE
     Indication: Immunosuppressant drug therapy
     Route: 065
  6. PREDNISONE [Suspect]
     Active Substance: PREDNISONE
     Dosage: 50 MG, QD
     Route: 048
  7. PREDNISONE [Suspect]
     Active Substance: PREDNISONE
     Route: 048
  8. MYCOPHENOLATE MOFETIL [Suspect]
     Active Substance: MYCOPHENOLATE MOFETIL
     Indication: Prophylaxis against graft versus host disease
     Route: 048
  9. MYCOPHENOLATE MOFETIL [Suspect]
     Active Substance: MYCOPHENOLATE MOFETIL
     Indication: Graft versus host disease
     Route: 065
  10. MYCOPHENOLATE MOFETIL [Suspect]
     Active Substance: MYCOPHENOLATE MOFETIL
     Indication: Immunosuppressant drug therapy
  11. TACROLIMUS [Suspect]
     Active Substance: TACROLIMUS
     Route: 048
  12. TACROLIMUS [Suspect]
     Active Substance: TACROLIMUS
     Indication: Prophylaxis against graft versus host disease
     Route: 065
  13. TACROLIMUS [Suspect]
     Active Substance: TACROLIMUS
     Indication: Graft versus host disease
     Route: 048
  14. TACROLIMUS [Suspect]
     Active Substance: TACROLIMUS
     Indication: Graft versus host disease
     Route: 048
  15. TACROLIMUS [Suspect]
     Active Substance: TACROLIMUS
     Indication: Prophylaxis against graft versus host disease
     Route: 065
  16. VELCADE [Suspect]
     Active Substance: BORTEZOMIB
     Indication: Prophylaxis against graft versus host disease
     Dosage: 1.3 MG/M2, Q2W, SINGLE USE VIAL
     Route: 042
  17. VELCADE [Suspect]
     Active Substance: BORTEZOMIB
     Indication: Immunosuppressant drug therapy
  18. BECLOMETHASONE [Concomitant]
     Active Substance: BECLOMETHASONE
     Indication: Graft versus host disease
     Route: 048
  19. BECLOMETHASONE DIPROPIONATE [Concomitant]
     Active Substance: BECLOMETHASONE DIPROPIONATE
     Indication: Immunosuppressant drug therapy
     Route: 048
  20. BECLOMETHASONE DIPROPIONATE [Concomitant]
     Active Substance: BECLOMETHASONE DIPROPIONATE
     Indication: Graft versus host disease
  21. CYCLOPHOSPHAMIDE [Concomitant]
     Active Substance: CYCLOPHOSPHAMIDE
     Indication: Immunosuppressant drug therapy
     Route: 065
  22. CYCLOPHOSPHAMIDE [Concomitant]
     Active Substance: CYCLOPHOSPHAMIDE
     Route: 065
  23. FLUDARABINE [Concomitant]
     Active Substance: FLUDARABINE PHOSPHATE
     Indication: Immunosuppressant drug therapy
     Route: 065
  24. FLUDARABINE [Concomitant]
     Active Substance: FLUDARABINE PHOSPHATE
     Route: 065
  25. METHYLPREDNISOLONE [Concomitant]
     Active Substance: METHYLPREDNISOLONE
     Indication: Graft versus host disease
     Route: 042
  26. METHYLPREDNISOLONE [Concomitant]
     Active Substance: METHYLPREDNISOLONE
     Indication: Immunosuppressant drug therapy

REACTIONS (6)
  - Hepatic failure [Fatal]
  - Disseminated intravascular coagulation [Fatal]
  - Cystitis haemorrhagic [Fatal]
  - Adenovirus infection [Fatal]
  - Product use in unapproved indication [Fatal]
  - Off label use [Fatal]
